FAERS Safety Report 8129009-1 (Version None)
Quarter: 2012Q1

REPORT INFORMATION
  Report Type: 
  Country: None (occurrence: None)
  Receive Date: 20120210
  Receipt Date: 20120131
  Transmission Date: 20120608
  Serious: Yes (Death, Other)
  Sender: FDA-Public Use
  Company Number: RO-JNJFOC-20120200801

PATIENT
  Sex: Male

DRUGS (4)
  1. INFLIXIMAB, RECOMBINANT [Suspect]
     Dosage: SECOND INFUSION
     Route: 042
  2. INFLIXIMAB, RECOMBINANT [Suspect]
     Indication: CROHN'S DISEASE
     Dosage: GIVEN PER 0,2,6 WEEKS
     Route: 042
  3. AZATHIOPRINE [Concomitant]
     Route: 065
  4. LORATADINE [Concomitant]
     Indication: PREMEDICATION
     Route: 065

REACTIONS (2)
  - PULMONARY EMBOLISM [None]
  - DRUG INEFFECTIVE [None]
